FAERS Safety Report 14438568 (Version 6)
Quarter: 2018Q2

REPORT INFORMATION
  Report Type: Spontaneous
  Country: BE (occurrence: BE)
  Receive Date: 20180125
  Receipt Date: 20180403
  Transmission Date: 20180711
  Serious: Yes (Other)
  Sender: FDA-Public Use
  Company Number: BE-IPSEN BIOPHARMACEUTICALS, INC.-2018-00923

PATIENT
  Age: 49 Year
  Sex: Male
  Weight: 69 kg

DRUGS (13)
  1. LEUCOVORIN. [Suspect]
     Active Substance: LEUCOVORIN
     Indication: COLORECTAL CANCER METASTATIC
     Dosage: NOT REPORTED
     Route: 042
     Dates: start: 20161214
  2. LACTULOSE. [Concomitant]
     Active Substance: LACTULOSE
  3. IRINOTECAN LIPOSOME [Suspect]
     Active Substance: IRINOTECAN
     Indication: COLORECTAL CANCER METASTATIC
     Dosage: 330 MG
     Route: 042
     Dates: start: 20161214
  4. IRINOTECAN LIPOSOME [Suspect]
     Active Substance: IRINOTECAN
     Indication: OFF LABEL USE
  5. AVASTIN [Suspect]
     Active Substance: BEVACIZUMAB
     Indication: COLORECTAL CANCER METASTATIC
     Route: 042
     Dates: start: 20161214
  6. TEMESTA (LORAZEPAM) [Concomitant]
     Active Substance: LORAZEPAM
  7. OXYNORM [Concomitant]
     Active Substance: OXYCODONE HYDROCHLORIDE
  8. CLARITINE [Concomitant]
     Active Substance: LORATADINE
  9. DAFALGAN [Concomitant]
     Active Substance: ACETAMINOPHEN
  10. OXALIPLATIN. [Suspect]
     Active Substance: OXALIPLATIN
     Indication: COLORECTAL CANCER METASTATIC
     Route: 042
  11. DUROGESIC [Concomitant]
     Active Substance: FENTANYL
  12. FLUOROURACIL. [Suspect]
     Active Substance: FLUOROURACIL
     Indication: COLORECTAL CANCER METASTATIC
     Dosage: NOT REPORTED
     Route: 042
     Dates: start: 20161214
  13. CETRIZINE [Concomitant]
     Active Substance: CETIRIZINE HYDROCHLORIDE

REACTIONS (15)
  - Dyspnoea [Not Recovered/Not Resolved]
  - Hypoalbuminaemia [Not Recovered/Not Resolved]
  - Constipation [Not Recovered/Not Resolved]
  - Nausea [Recovered/Resolved]
  - Palmar-plantar erythrodysaesthesia syndrome [Not Recovered/Not Resolved]
  - Stomatitis [Not Recovered/Not Resolved]
  - Alopecia [Recovered/Resolved]
  - Depressed mood [Not Recovered/Not Resolved]
  - Off label use [Unknown]
  - Neutropenia [Recovered/Resolved]
  - Fatigue [Not Recovered/Not Resolved]
  - Epistaxis [Not Recovered/Not Resolved]
  - Decreased appetite [Recovered/Resolved]
  - Onychoclasis [Recovered/Resolved]
  - Condition aggravated [Not Recovered/Not Resolved]

NARRATIVE: CASE EVENT DATE: 20161214
